FAERS Safety Report 12971133 (Version 2)
Quarter: 2016Q4

REPORT INFORMATION
  Report Type: Spontaneous
  Country: US (occurrence: US)
  Receive Date: 20161123
  Receipt Date: 20161128
  Transmission Date: 20170207
  Serious: No
  Sender: FDA-Public Use
  Company Number: US-JAZZ-2016-US-019121

PATIENT
  Sex: Female

DRUGS (34)
  1. XYREM [Suspect]
     Active Substance: SODIUM OXYBATE
     Dosage: DOSE ADJUSTMENTS
     Route: 048
     Dates: start: 200609, end: 200905
  2. AMBIEN [Concomitant]
     Active Substance: ZOLPIDEM TARTRATE
  3. CYTOMEL [Concomitant]
     Active Substance: LIOTHYRONINE SODIUM
  4. CLONAZEPAM. [Concomitant]
     Active Substance: CLONAZEPAM
  5. SPRINTEC [Concomitant]
     Active Substance: ETHINYL ESTRADIOL\NORGESTIMATE
  6. DEPAKOTE [Concomitant]
     Active Substance: DIVALPROEX SODIUM
  7. XYREM [Suspect]
     Active Substance: SODIUM OXYBATE
     Indication: SLEEP DISORDER
     Dosage: 3 G, BID
     Route: 048
     Dates: start: 200402, end: 200409
  8. MELOXICAM. [Concomitant]
     Active Substance: MELOXICAM
  9. MELATONIN [Concomitant]
     Active Substance: MELATONIN
  10. MUCINEX [Concomitant]
     Active Substance: GUAIFENESIN
  11. NORCO [Concomitant]
     Active Substance: ACETAMINOPHEN\HYDROCODONE BITARTRATE
  12. LIDODERM [Concomitant]
     Active Substance: LIDOCAINE
  13. XYREM [Suspect]
     Active Substance: SODIUM OXYBATE
     Dosage: 4.25 G, BID
     Route: 048
     Dates: start: 200905
  14. KLONOPIN [Concomitant]
     Active Substance: CLONAZEPAM
  15. PREDNISONE. [Concomitant]
     Active Substance: PREDNISONE
  16. SUMATRIPTAN SUCCINATE. [Concomitant]
     Active Substance: SUMATRIPTAN SUCCINATE
  17. ZOLPIDEM TARTRATE. [Concomitant]
     Active Substance: ZOLPIDEM TARTRATE
  18. ALLEGRA ALLERGY [Concomitant]
     Active Substance: FEXOFENADINE HYDROCHLORIDE
  19. XYREM [Suspect]
     Active Substance: SODIUM OXYBATE
     Dosage: 3.5 G, BID
     Route: 048
     Dates: start: 200605, end: 200609
  20. TIROSINT [Concomitant]
     Active Substance: LEVOTHYROXINE SODIUM
  21. ARMOUR THYROID [Concomitant]
     Active Substance: THYROID, PORCINE
  22. BISOPROLOL FUMARATE. [Concomitant]
     Active Substance: BISOPROLOL FUMARATE
  23. IPRATROPIUM BR [Concomitant]
  24. DILTIAZEM. [Concomitant]
     Active Substance: DILTIAZEM
  25. PRILOSEC [Concomitant]
     Active Substance: OMEPRAZOLE MAGNESIUM
  26. PROAIR HFA [Concomitant]
     Active Substance: ALBUTEROL SULFATE
  27. TIZANIDINE HCL [Concomitant]
     Active Substance: TIZANIDINE HYDROCHLORIDE
  28. XYREM [Suspect]
     Active Substance: SODIUM OXYBATE
     Dosage: 3.5 G, BID
     Route: 048
     Dates: start: 200409, end: 2005
  29. ADVAIR HFA [Concomitant]
     Active Substance: FLUTICASONE PROPIONATE\SALMETEROL XINAFOATE
  30. BENADRYL ALLERGY [Concomitant]
     Active Substance: DIPHENHYDRAMINE HYDROCHLORIDE
  31. XOPENEX HFA [Concomitant]
     Active Substance: LEVALBUTEROL TARTRATE
  32. BIOTIN [Concomitant]
     Active Substance: BIOTIN
  33. TRAMADOL. [Concomitant]
     Active Substance: TRAMADOL
  34. BENADRYL ALLERGY [Concomitant]
     Active Substance: DIPHENHYDRAMINE HYDROCHLORIDE

REACTIONS (3)
  - Hypervigilance [Unknown]
  - Anxiety [Unknown]
  - Insomnia [Unknown]
